FAERS Safety Report 5837641-0 (Version None)
Quarter: 2008Q3

REPORT INFORMATION
  Report Type: 
  Country: None (occurrence: None)
  Receive Date: 20080807
  Receipt Date: 20080805
  Transmission Date: 20090109
  Serious: Yes (Other)
  Sender: FDA-Public Use
  Company Number: PHEH2008US05334

PATIENT
  Sex: Female

DRUGS (4)
  1. EXELON [Suspect]
     Indication: MEMORY IMPAIRMENT
     Dosage: 4.6 MG, UNK
     Route: 062
     Dates: end: 20080601
  2. TOPROL-XL [Concomitant]
  3. NEURONTIN [Concomitant]
  4. PLAVIX [Concomitant]

REACTIONS (1)
  - URINARY RETENTION [None]
